FAERS Safety Report 20983862 (Version 1)
Quarter: 2022Q2

REPORT INFORMATION
  Report Type: Spontaneous
  Country: US (occurrence: US)
  Receive Date: 20220621
  Receipt Date: 20220621
  Transmission Date: 20220721
  Serious: Yes (Other)
  Sender: FDA-Public Use
  Company Number: US-SUN PHARMACEUTICAL INDUSTRIES LTD-2022R1-341263

PATIENT
  Age: 43 Year
  Sex: Male

DRUGS (2)
  1. BACLOFEN [Suspect]
     Active Substance: BACLOFEN
     Indication: Muscle spasticity
     Dosage: 5 MILLIGRAM, BID
     Route: 048
  2. BACLOFEN [Suspect]
     Active Substance: BACLOFEN
     Dosage: 10 MILLIGRAM, TID
     Route: 048

REACTIONS (1)
  - Altered state of consciousness [Recovered/Resolved]
